FAERS Safety Report 6597790-9 (Version None)
Quarter: 2010Q1

REPORT INFORMATION
  Report Type: 
  Country: None (occurrence: None)
  Receive Date: 20100216
  Receipt Date: 20100211
  Transmission Date: 20100710
  Serious: Yes (Death)
  Sender: FDA-Public Use
  Company Number: 2010SP008220

PATIENT
  Age: 58 Year
  Sex: Female

DRUGS (1)
  1. TEMODAR [Suspect]
     Indication: NEOPLASM

REACTIONS (1)
  - RESPIRATORY FAILURE [None]
